FAERS Safety Report 5879866-4 (Version None)
Quarter: 2008Q3

REPORT INFORMATION
  Report Type: 
  Country: None (occurrence: None)
  Receive Date: 20080911
  Receipt Date: 20080911
  Transmission Date: 20090109
  Serious: Yes (Other)
  Sender: FDA-Public Use
  Company Number: None

PATIENT
  Sex: Male
  Weight: 96.6162 kg

DRUGS (13)
  1. DETROL LA [Suspect]
     Indication: MICTURITION URGENCY
     Dosage: 4MG CAP 1 PER DAY ORAL
     Route: 048
     Dates: start: 20030101, end: 20080612
  2. LUPRON [Concomitant]
  3. VERAPAMIL [Concomitant]
  4. POTASSIUM CLORIDE ER [Concomitant]
  5. BUMETANIDE [Concomitant]
  6. DICLOFENAC SODIUM [Concomitant]
  7. CALCIUM CITRATE +D [Concomitant]
  8. CORTIZONE SHOTS [Concomitant]
  9. CENTRUM SILVER [Concomitant]
  10. GLUCOSAMINE [Concomitant]
  11. CHRONDROITIN [Concomitant]
  12. DOXAZOSIN MESYLATE [Concomitant]
  13. ASPERIN [Concomitant]

REACTIONS (1)
  - APHASIA [None]
